FAERS Safety Report 22310872 (Version 2)
Quarter: 2023Q2

REPORT INFORMATION
  Report Type: Spontaneous
  Country: PT (occurrence: PT)
  Receive Date: 20230511
  Receipt Date: 20230524
  Transmission Date: 20230721
  Serious: Yes (Other)
  Sender: FDA-Public Use
  Company Number: PT-GILEAD-2023-0624380

PATIENT
  Age: 54 Year
  Sex: Female

DRUGS (1)
  1. LEDIPASVIR\SOFOSBUVIR [Suspect]
     Active Substance: LEDIPASVIR\SOFOSBUVIR
     Indication: Hepatitis C
     Dosage: UNK
     Route: 065
     Dates: start: 201502, end: 201508

REACTIONS (3)
  - Upper gastrointestinal haemorrhage [Unknown]
  - Oesophageal varices haemorrhage [Unknown]
  - Ascites [Unknown]

NARRATIVE: CASE EVENT DATE: 20150401
